FAERS Safety Report 6129358-2 (Version None)
Quarter: 2009Q1

REPORT INFORMATION
  Report Type: 
  Country: None (occurrence: None)
  Receive Date: 20090324
  Receipt Date: 20090317
  Transmission Date: 20090719
  Serious: Yes (Death, Hospitalization)
  Sender: FDA-Public Use
  Company Number: PHHY2008JP33276

PATIENT
  Age: 70 Year
  Sex: Female

DRUGS (9)
  1. DESFERAL [Suspect]
     Indication: IRON OVERLOAD
     Dosage: 1000 MG
     Dates: start: 20081120
  2. DESFERAL [Suspect]
     Indication: MYELODYSPLASTIC SYNDROME
  3. EXJADE [Suspect]
     Indication: IRON OVERLOAD
     Dosage: UNK
     Route: 048
     Dates: start: 20080808, end: 20081101
  4. EXJADE [Suspect]
     Indication: MYELODYSPLASTIC SYNDROME
  5. THYRADIN S [Concomitant]
     Dosage: 100 MG
     Route: 048
     Dates: start: 20081114, end: 20081224
  6. PRIMOBOLAN [Concomitant]
     Dosage: 20 MG
     Route: 048
     Dates: start: 20081104, end: 20081224
  7. TAKEPRON [Concomitant]
     Dosage: 15 MG
     Route: 048
     Dates: start: 20081212, end: 20081224
  8. AMINO ACIDS/CARBOHYDRATES/MINERALS/VITAMINS, [Concomitant]
     Dosage: 1000 ML
     Dates: start: 20081114, end: 20081224
  9. DECADRON [Concomitant]
     Dosage: 1 MG
     Dates: start: 20081114, end: 20081224

REACTIONS (7)
  - CARDIAC FAILURE [None]
  - FEBRILE NEUTROPENIA [None]
  - GENERAL PHYSICAL HEALTH DETERIORATION [None]
  - HEPATIC FAILURE [None]
  - HYPERTHERMIA [None]
  - PANCYTOPENIA [None]
  - RENAL FAILURE [None]
